FAERS Safety Report 24689719 (Version 1)
Quarter: 2024Q4

REPORT INFORMATION
  Report Type: Spontaneous
  Country: TW (occurrence: TW)
  Receive Date: 20241203
  Receipt Date: 20241203
  Transmission Date: 20250115
  Serious: Yes (Other)
  Sender: UCB
  Company Number: TW-UCBSA-2024061962

PATIENT
  Age: 59 Year
  Sex: Female

DRUGS (7)
  1. NEUPRO [Suspect]
     Active Substance: ROTIGOTINE
     Indication: Product used for unknown indication
     Dosage: 8 MILLIGRAM, ONCE DAILY (QD)
  2. NEUPRO [Suspect]
     Active Substance: ROTIGOTINE
     Dosage: 4 MILLIGRAM, ONCE DAILY (QD)
  3. BENSERAZIDE HYDROCHLORIDE\LEVODOPA [Concomitant]
     Active Substance: BENSERAZIDE HYDROCHLORIDE\LEVODOPA
     Indication: Product used for unknown indication
     Dosage: (200/50) 1/4, 3X/DAY (TID)
  4. BENSERAZIDE HYDROCHLORIDE\LEVODOPA [Concomitant]
     Active Substance: BENSERAZIDE HYDROCHLORIDE\LEVODOPA
     Dosage: (200/50) 1/2, 3X/DAY (TID)
  5. BENSERAZIDE HYDROCHLORIDE\LEVODOPA [Concomitant]
     Active Substance: BENSERAZIDE HYDROCHLORIDE\LEVODOPA
     Dosage: (200/50) 1/2, ONCE DAILY (QD)
  6. ARTEMETHER [Concomitant]
     Active Substance: ARTEMETHER
     Indication: Product used for unknown indication
     Dosage: 2 (UNITS NOT REPORTED) ONCE DAILY (QD)
  7. ARTEMETHER [Concomitant]
     Active Substance: ARTEMETHER
     Dosage: 2 (UNITS NOT REPORTED) 2X/DAY (BID)

REACTIONS (6)
  - Dystonia [Unknown]
  - Neck pain [Unknown]
  - Pain [Unknown]
  - Dizziness [Unknown]
  - Clumsiness [Unknown]
  - Tremor [Unknown]

NARRATIVE: CASE EVENT DATE: 20170905
